FAERS Safety Report 4986495-3 (Version None)
Quarter: 2006Q2

REPORT INFORMATION
  Report Type: 
  Country: None (occurrence: None)
  Receive Date: 20060424
  Receipt Date: 20060410
  Transmission Date: 20061013
  Serious: Yes (Other)
  Sender: FDA-Public Use
  Company Number: 2006-00692

PATIENT
  Age: 70 Year
  Sex: Female
  Weight: 72.1 kg

DRUGS (9)
  1. VELCADE [Suspect]
     Indication: MULTIPLE MYELOMA
     Dosage: UNK
     Route: 065
     Dates: end: 20060316
  2. HYDROCHLOROTHIAZIDE [Concomitant]
  3. INDERAL [Concomitant]
  4. NEXIUM [Concomitant]
  5. OXYCONTIN [Concomitant]
  6. ATIVAN [Concomitant]
  7. WELLBUTRIN [Concomitant]
  8. RISPERDAL [Concomitant]
  9. LUNESTA [Concomitant]

REACTIONS (4)
  - ANXIETY [None]
  - COR PULMONALE [None]
  - PLEURAL EFFUSION [None]
  - PULMONARY HYPERTENSION [None]
